FAERS Safety Report 13964204 (Version 4)
Quarter: 2018Q1

REPORT INFORMATION
  Report Type: Spontaneous
  Country: DE (occurrence: DE)
  Receive Date: 20170913
  Receipt Date: 20180207
  Transmission Date: 20180508
  Serious: Yes (Life-Threatening, Other)
  Sender: FDA-Public Use
  Company Number: DE-TEVA-802903GER

PATIENT
  Age: 85 Year
  Sex: Female
  Weight: 60 kg

DRUGS (10)
  1. HEPARIN-NATRIUM-25 000-RATIOPHARM [Suspect]
     Active Substance: HEPARIN SODIUM
     Dosage: 10000 IU (INTERNATIONAL UNIT) DAILY; 1. ADMINISTRATION HEPARIN 5000 I.U .; 2. ADMINISTRATION HEPARIN
     Route: 065
     Dates: start: 20170831, end: 20170831
  2. HCT 25 [Concomitant]
     Dosage: 0,5-0-0
  3. REMERGIL SOLTAB 15 [Concomitant]
     Dosage: 0-0-1
  4. OPIPRAM 100 [Concomitant]
     Dosage: 0-0-1
  5. METOPROLOL 95 [Concomitant]
     Dosage: 1-0-1
  6. AMLODIPIN 10 [Concomitant]
     Active Substance: AMLODIPINE BESYLATE
     Dosage: 0-0-1
  7. CANDESARTAN 32/12.5 [Concomitant]
     Dosage: 1-0-0
  8. SIMVASTATIN 20 [Concomitant]
     Active Substance: SIMVASTATIN
     Dosage: 0-0-1
  9. CLEXANE 0.4 [Concomitant]
  10. EBRANTIL 30 [Concomitant]
     Dosage: 1-0-1

REACTIONS (5)
  - Pulmonary congestion [Unknown]
  - Vasodilatation [Recovered/Resolved]
  - Pleural effusion [Unknown]
  - Haemoglobin increased [Recovered/Resolved]
  - Blood pressure systolic decreased [Unknown]

NARRATIVE: CASE EVENT DATE: 20170831
